FAERS Safety Report 11156497 (Version 2)
Quarter: 2015Q2

REPORT INFORMATION
  Report Type: Other
  Country: IT (occurrence: IT)
  Receive Date: 20150602
  Receipt Date: 20150611
  Transmission Date: 20150821
  Serious: Yes (Other)
  Sender: FDA-Public Use
  Company Number: IT-MYLANLABS-2015M1017801

PATIENT

DRUGS (5)
  1. QUETIAPINA MYLAN GENERICS [Suspect]
     Active Substance: QUETIAPINE
     Indication: COGNITIVE DISORDER
     Dosage: 1 DF DAILY
     Route: 048
     Dates: start: 20150126, end: 20150210
  2. QUETIAPINA MYLAN GENERICS [Suspect]
     Active Substance: QUETIAPINE
     Indication: DELIRIUM
  3. PANTORC [Concomitant]
     Active Substance: PANTOPRAZOLE SODIUM
     Indication: PRODUCT USED FOR UNKNOWN INDICATION
     Dosage: UNK
  4. MINIAS [Concomitant]
     Active Substance: LORMETAZEPAM
     Indication: PRODUCT USED FOR UNKNOWN INDICATION
     Dosage: UNK
  5. CARDIRENE [Concomitant]
     Active Substance: ASPIRIN DL-LYSINE
     Indication: PRODUCT USED FOR UNKNOWN INDICATION
     Dosage: UNK

REACTIONS (4)
  - Dysphoria [Recovered/Resolved]
  - Drug ineffective [Recovered/Resolved]
  - Agitation [Recovered/Resolved]
  - Insomnia [Recovered/Resolved]

NARRATIVE: CASE EVENT DATE: 20150210
